FAERS Safety Report 13430032 (Version 1)
Quarter: 2017Q2

REPORT INFORMATION
  Report Type: Report from Study
  Country: None (occurrence: US)
  Receive Date: 20170412
  Receipt Date: 20170412
  Transmission Date: 20170830
  Serious: Yes (Other)
  Sender: FDA-Public Use
  Company Number: US-ABBVIE-17K-163-1937894-00

PATIENT
  Sex: Male
  Weight: 82.63 kg

DRUGS (1)
  1. HUMIRA [Suspect]
     Active Substance: ADALIMUMAB
     Indication: CROHN^S DISEASE
     Route: 058
     Dates: start: 2007, end: 201611

REACTIONS (7)
  - Hepatic neoplasm [Recovered/Resolved]
  - Colon cancer [Recovered/Resolved]
  - Weight decreased [Not Recovered/Not Resolved]
  - Hernia [Recovered/Resolved]
  - Crohn^s disease [Unknown]
  - Precancerous cells present [Recovered/Resolved]
  - Arthritis [Not Recovered/Not Resolved]

NARRATIVE: CASE EVENT DATE: 2016
